FAERS Safety Report 4756912-2 (Version None)
Quarter: 2005Q3

REPORT INFORMATION
  Report Type: 
  Country: None (occurrence: None)
  Receive Date: 20050830
  Receipt Date: 20050704
  Transmission Date: 20060218
  Serious: Yes (Hospitalization, Disabling)
  Sender: FDA-Public Use
  Company Number: 2005CG01209

PATIENT
  Age: 636 Month
  Sex: Male
  Weight: 78 kg

DRUGS (6)
  1. CRESTOR [Suspect]
     Indication: HYPERCHOLESTEROLAEMIA
     Route: 048
     Dates: start: 20050419, end: 20050615
  2. CRESTOR [Suspect]
     Indication: CORONARY ARTERY DISEASE
     Route: 048
     Dates: start: 20050419, end: 20050615
  3. ISOPTIN [Concomitant]
     Indication: HYPERTENSION
     Dates: start: 20040601
  4. FORTZAAR [Concomitant]
     Indication: HYPERTENSION
     Dates: start: 20041001
  5. KARDEGIC [Concomitant]
     Indication: CORONARY ARTERY INSUFFICIENCY
     Dates: start: 20040601
  6. PLAVIX [Concomitant]
     Indication: CORONARY ARTERY INSUFFICIENCY
     Dates: start: 20040601

REACTIONS (6)
  - ASTHENIA [None]
  - FALL [None]
  - HYPOTONIA [None]
  - LOW DENSITY LIPOPROTEIN INCREASED [None]
  - MUSCULAR WEAKNESS [None]
  - RADIUS FRACTURE [None]
